FAERS Safety Report 25322382 (Version 2)
Quarter: 2025Q3

REPORT INFORMATION
  Report Type: Report from Study
  Country: ZA (occurrence: ZA)
  Receive Date: 20250516
  Receipt Date: 20250802
  Transmission Date: 20251020
  Serious: Yes (Death, Other)
  Sender: ALEXION PHARMACEUTICALS
  Company Number: ZA-AstraZeneca-CH-00870390A

PATIENT
  Age: 57 Year
  Sex: Female

DRUGS (10)
  1. BUDESONIDE\FORMOTEROL [Suspect]
     Active Substance: BUDESONIDE\FORMOTEROL
     Indication: Asthma
  2. DOXAZOSIN MESYLATE [Concomitant]
     Active Substance: DOXAZOSIN MESYLATE
     Indication: Benign prostatic hyperplasia
  3. CETIRIZINE HYDROCHLORIDE [Concomitant]
     Active Substance: CETIRIZINE HYDROCHLORIDE
     Indication: Hypersensitivity
  4. EUTHYROX [Concomitant]
     Active Substance: LEVOTHYROXINE SODIUM
     Indication: Hypothyroidism
  5. POTASSIUM CHLORIDE [Concomitant]
     Active Substance: POTASSIUM CHLORIDE
     Indication: Blood potassium abnormal
  6. DAPAGLIFLOZIN [Concomitant]
     Active Substance: DAPAGLIFLOZIN
     Indication: Diabetes mellitus
  7. Torsinat [Concomitant]
     Indication: Hypertension
  8. Synaleve [Concomitant]
     Indication: Pain
  9. Austell amlodipine [Concomitant]
     Indication: Hypertension
  10. FUROSEMIDE [Concomitant]
     Active Substance: FUROSEMIDE
     Indication: Hypertension

REACTIONS (1)
  - Death [Fatal]

NARRATIVE: CASE EVENT DATE: 20250506
